FAERS Safety Report 13807894 (Version 1)
Quarter: 2017Q3

REPORT INFORMATION
  Report Type: Spontaneous
  Country: US (occurrence: US)
  Receive Date: 20170728
  Receipt Date: 20170728
  Transmission Date: 20171127
  Serious: No
  Sender: FDA-Public Use
  Company Number: US-DEPOMED, INC.-US-2017DEP000195

PATIENT

DRUGS (2)
  1. LAZANDA [Suspect]
     Active Substance: FENTANYL CITRATE
     Dosage: TAKE ONE NASAL SPRAY PER SIDE EVERY 8HRS
     Route: 045
     Dates: start: 20170109
  2. LAZANDA [Suspect]
     Active Substance: FENTANYL CITRATE
     Indication: HEADACHE
     Dosage: ONE NASAL SPRAY PER SIDE EVERY 6HRS
     Route: 045
     Dates: start: 201611

REACTIONS (2)
  - Product use in unapproved indication [Not Recovered/Not Resolved]
  - Product container issue [Unknown]

NARRATIVE: CASE EVENT DATE: 201611
